FAERS Safety Report 5225420-7 (Version None)
Quarter: 2007Q1

REPORT INFORMATION
  Report Type: 
  Country: None (occurrence: None)
  Receive Date: 20061201
  Receipt Date: 20060915
  Transmission Date: 20070707
  Serious: Yes (Hospitalization)
  Sender: FDA-Public Use
  Company Number: US200609003998

PATIENT
  Age: 52 Year
  Sex: Male

DRUGS (10)
  1. CYMBALTA [Suspect]
     Indication: DEPRESSION
     Dosage: 60 MG
     Dates: start: 20060914
  2. KLONOPIN [Concomitant]
  3. ADVAIR DISKUS (FLUTICASONE PROPIONATE, SALMETEROL XINAFOATE) [Concomitant]
  4. ALBUTEROL SULFATE [Concomitant]
  5. FLONASE [Concomitant]
  6. LIPITOR [Concomitant]
  7. PRILOSEC [Concomitant]
  8. ZYRTEC [Concomitant]
  9. LASIX [Concomitant]
  10. POTASSIUM (POTASSIUM) [Concomitant]

REACTIONS (1)
  - SUICIDAL IDEATION [None]
